FAERS Safety Report 17386780 (Version 5)
Quarter: 2020Q1

REPORT INFORMATION
  Report Type: Spontaneous
  Country: DE (occurrence: DE)
  Receive Date: 20200206
  Receipt Date: 20200319
  Transmission Date: 20200409
  Serious: Yes (Other)
  Sender: FDA-Public Use
  Company Number: DE-ASCEND THERAPEUTICS US, LLC-2079921

PATIENT
  Sex: Female

DRUGS (4)
  1. ESTROGEL [Suspect]
     Active Substance: ESTRADIOL
     Indication: OOPHORECTOMY
     Dates: start: 2006
  2. ELIQUIS [Concomitant]
     Active Substance: APIXABAN
  3. ESTROGEL [Suspect]
     Active Substance: ESTRADIOL
     Indication: HORMONE REPLACEMENT THERAPY
     Dates: start: 2006
  4. GYNOKADIN DOSIERGEL (ESTRADIOL) (GEL), UNKNOWN [Suspect]
     Active Substance: ESTRADIOL
     Dates: start: 2006

REACTIONS (2)
  - Contraindicated product administered [Unknown]
  - Venous thrombosis [Unknown]

NARRATIVE: CASE EVENT DATE: 2019
